FAERS Safety Report 12677731 (Version 1)
Quarter: 2016Q3

REPORT INFORMATION
  Report Type: Spontaneous
  Country: AU (occurrence: AU)
  Receive Date: 20160823
  Receipt Date: 20160823
  Transmission Date: 20161109
  Serious: Yes (Other)
  Sender: FDA-Public Use
  Company Number: AU-HQ SPECIALTY-AU-2016INT000832

PATIENT
  Sex: Female

DRUGS (6)
  1. PREDNISOLONE. [Suspect]
     Active Substance: PREDNISOLONE
     Indication: RHEUMATOID ARTHRITIS
     Dosage: 7 MG,1 D
     Route: 065
  2. METHOTREXATE SODIUM. [Suspect]
     Active Substance: METHOTREXATE SODIUM
     Dosage: 1.4286 MG (10 MG,1 IN 1 W)
     Route: 065
     Dates: start: 201205, end: 201209
  3. METHOTREXATE SODIUM. [Suspect]
     Active Substance: METHOTREXATE SODIUM
     Dosage: (20 MG,1 IN 1 W)
     Route: 065
     Dates: end: 201203
  4. METHOTREXATE SODIUM. [Suspect]
     Active Substance: METHOTREXATE SODIUM
     Indication: RHEUMATOID ARTHRITIS
     Dosage: 2.1429 MG (15 MG,1 IN 1 W)
     Route: 065
     Dates: start: 201002
  5. PREDNISOLONE. [Suspect]
     Active Substance: PREDNISOLONE
     Dosage: DOSE REDUCED (3.5 MG,1 D)
     Route: 065
  6. HYDROXYCHLOROQUINE [Suspect]
     Active Substance: HYDROXYCHLOROQUINE
     Indication: RHEUMATOID ARTHRITIS
     Dosage: 400 MG (200 MG,2 IN 1 D)
     Route: 065
     Dates: start: 201002, end: 201111

REACTIONS (4)
  - Acute myocardial infarction [Unknown]
  - Polyarthritis [Unknown]
  - Angina unstable [Unknown]
  - Abdominal pain [Unknown]

NARRATIVE: CASE EVENT DATE: 2010
